FAERS Safety Report 4326202-0 (Version None)
Quarter: 2004Q1

REPORT INFORMATION
  Report Type: 
  Country: None (occurrence: None)
  Receive Date: 20040324
  Receipt Date: 20040312
  Transmission Date: 20041129
  Serious: Yes (Death, Hospitalization)
  Sender: FDA-Public Use
  Company Number: HQWYE788112MAR04

PATIENT
  Age: 90 Year
  Sex: Female

DRUGS (2)
  1. CORDARONE [Suspect]
     Indication: ATRIAL FIBRILLATION
     Dosage: 200 MG 3X PER 1 WK, ORAL A FEW YEARS
     Route: 048
     Dates: end: 20040122
  2. LASIX [Concomitant]

REACTIONS (4)
  - ACUTE RESPIRATORY DISTRESS SYNDROME [None]
  - HYPERTHERMIA [None]
  - PULMONARY FIBROSIS [None]
  - PULMONARY OEDEMA [None]
